FAERS Safety Report 5339865-8 (Version None)
Quarter: 2007Q3

REPORT INFORMATION
  Report Type: 
  Country: None (occurrence: None)
  Receive Date: 20070529
  Receipt Date: 20070522
  Transmission Date: 20080115
  Serious: Yes (Other)
  Sender: FDA-Public Use
  Company Number: S07-USA-01638-01

PATIENT
  Age: 58 Year
  Sex: Female

DRUGS (8)
  1. THYROID TAB [Suspect]
     Indication: HYPOTHYROIDISM
     Dosage: 150 MG QAM PO
     Route: 048
     Dates: start: 19920101, end: 20070101
  2. THYROID TAB [Suspect]
     Indication: HYPOTHYROIDISM
     Dosage: 60 MG QHS PO
     Route: 048
     Dates: start: 19920101, end: 20070101
  3. ROCALTROL [Concomitant]
  4. HECTORAL (DOXERCALCIFEROL) [Concomitant]
  5. CORTEF [Concomitant]
  6. THYROID TAB [Suspect]
     Indication: HYPOTHYROIDISM
     Dosage: 210 MG QAM PO
     Route: 048
     Dates: start: 20070101
  7. EVISTA [Suspect]
     Indication: OSTEOPOROSIS
     Dosage: 60 MG QD
     Dates: start: 20070410, end: 20070416
  8. EVISTA [Suspect]
     Indication: OSTEOPOROSIS
     Dosage: 60 MG BIW
     Dates: start: 20070508

REACTIONS (8)
  - BREAST CANCER FEMALE [None]
  - CONDITION AGGRAVATED [None]
  - DEPRESSION [None]
  - DRUG INTERACTION [None]
  - FATIGUE [None]
  - HOT FLUSH [None]
  - HYPOTHYROIDISM [None]
  - OSTEOPOROSIS [None]
